FAERS Safety Report 8162419-5 (Version None)
Quarter: 2012Q1

REPORT INFORMATION
  Report Type: 
  Country: None (occurrence: None)
  Receive Date: 20120221
  Receipt Date: 20120208
  Transmission Date: 20120608
  Serious: Yes (Hospitalization, Disabling, Other)
  Sender: FDA-Public Use
  Company Number: WAES 1201USA00791

PATIENT
  Age: 9 Year
  Sex: Male
  Weight: 24.0406 kg

DRUGS (7)
  1. PREDNISONE [Concomitant]
  2. AUGMENTIN '125' [Concomitant]
  3. TAB RALTEGRAVIR POTASSIUM UNK [Suspect]
     Route: 048
  4. BACTRIM [Concomitant]
  5. KALETRA [Concomitant]
  6. TENOFOVIR [Concomitant]
  7. LAMIVUDINE [Concomitant]

REACTIONS (3)
  - EPSTEIN-BARR VIRUS INFECTION [None]
  - ENCEPHALITIS VIRAL [None]
  - HYPONATRAEMIA [None]
